FAERS Safety Report 4933928-4 (Version None)
Quarter: 2006Q1

REPORT INFORMATION
  Report Type: 
  Country: None (occurrence: None)
  Receive Date: 20060301
  Receipt Date: 20060216
  Transmission Date: 20060701
  Serious: Yes (Other)
  Sender: FDA-Public Use
  Company Number: 2006024868

PATIENT
  Age: 76 Year
  Sex: Female
  Weight: 66.6788 kg

DRUGS (7)
  1. CELEBREX [Suspect]
     Indication: ARTHRALGIA
  2. ATENOLOL [Concomitant]
  3. STATINS (HMG COA REDUCTASE INHIBITORS) [Concomitant]
  4. AMIODARONE (AMIODARONE) [Concomitant]
  5. DIURETICS (DIURETICS) [Concomitant]
  6. WARFARIN SODIUM [Concomitant]
  7. MULTIVITAMIN [Concomitant]

REACTIONS (4)
  - DIFFICULTY IN WALKING [None]
  - DRUG INEFFECTIVE [None]
  - INTERVERTEBRAL DISC DISPLACEMENT [None]
  - PAIN [None]
